FAERS Safety Report 23350992 (Version 1)
Quarter: 2023Q4

REPORT INFORMATION
  Report Type: Spontaneous
  Country: US (occurrence: None)
  Receive Date: 20231228
  Receipt Date: 20231228
  Transmission Date: 20240109
  Serious: Yes (Death)
  Sender: FDA-Public Use
  Company Number: None

PATIENT
  Age: 87 Year
  Sex: Female

DRUGS (1)
  1. PROLIA [Suspect]
     Active Substance: DENOSUMAB
     Indication: Osteoporosis
     Dosage: OTHER FREQUENCY : Q 180 DAYS;?
     Route: 030
     Dates: start: 20211201, end: 20230709

REACTIONS (1)
  - Death [None]

NARRATIVE: CASE EVENT DATE: 20230709
